FAERS Safety Report 6170551-0 (Version None)
Quarter: 2009Q2

REPORT INFORMATION
  Report Type: 
  Country: None (occurrence: None)
  Receive Date: 20090428
  Receipt Date: 20090417
  Transmission Date: 20091009
  Serious: Yes (Life-Threatening, Hospitalization, Other)
  Sender: FDA-Public Use
  Company Number: US-ELI_LILLY_AND_COMPANY-US200904003911

PATIENT
  Sex: Female

DRUGS (10)
  1. FORTEO [Suspect]
     Indication: SPINAL FRACTURE
     Dosage: 20 UG, DAILY (1/D)
     Dates: end: 20090101
  2. FORTEO [Suspect]
     Dosage: 20 UG, QOD
     Dates: start: 20090406, end: 20090413
  3. ASPIRIN [Concomitant]
  4. PLAVIX [Concomitant]
  5. BETAPACE [Concomitant]
  6. NEURONTIN [Concomitant]
  7. METAGLIP [Concomitant]
  8. OXYCODONE [Concomitant]
  9. ALTACE [Concomitant]
  10. FENTANYL [Concomitant]

REACTIONS (7)
  - ANAPHYLACTIC SHOCK [None]
  - DIARRHOEA [None]
  - DYSPNOEA [None]
  - FEAR [None]
  - PRURITUS [None]
  - RASH GENERALISED [None]
  - URTICARIA [None]
